FAERS Safety Report 7083992-4 (Version None)
Quarter: 2010Q4

REPORT INFORMATION
  Report Type: 
  Country: None (occurrence: None)
  Receive Date: 20101104
  Receipt Date: 20101025
  Transmission Date: 20110411
  Serious: Yes (Hospitalization)
  Sender: FDA-Public Use
  Company Number: Z0006072C

PATIENT
  Age: 65 Year
  Sex: Male
  Weight: 88 kg

DRUGS (4)
  1. OFATUMUMAB [Suspect]
     Indication: LYMPHOMA
     Dosage: 1000MG EVERY 3 WEEKS
     Route: 042
     Dates: start: 20101001
  2. CISPLATIN [Suspect]
     Indication: LYMPHOMA
     Dosage: 209MG EVERY 3 WEEKS
     Route: 042
     Dates: start: 20101002
  3. CYTARABINE [Suspect]
     Indication: LYMPHOMA
     Dosage: 1480MG EVERY 3 WEEKS
     Route: 042
     Dates: start: 20101003
  4. DEXAMETHASONE [Suspect]
     Indication: LYMPHOMA
     Route: 042
     Dates: start: 20101001

REACTIONS (4)
  - DEHYDRATION [None]
  - FAILURE TO THRIVE [None]
  - FATIGUE [None]
  - MUSCULAR WEAKNESS [None]
